FAERS Safety Report 8186675-2 (Version None)
Quarter: 2012Q1

REPORT INFORMATION
  Report Type: 
  Country: None (occurrence: None)
  Receive Date: 20120213
  Receipt Date: 20110124
  Transmission Date: 20120608
  Serious: Yes (Other)
  Sender: FDA-Public Use
  Company Number: E2020-08433-SPO-US

PATIENT
  Sex: Female

DRUGS (1)
  1. ARICEPT [Suspect]
     Dosage: ORAL
     Route: 048

REACTIONS (3)
  - BLADDER DISORDER [None]
  - TREMOR [None]
  - NIGHTMARE [None]
